FAERS Safety Report 8818533 (Version 1)
Quarter: 2012Q4

REPORT INFORMATION
  Report Type: 
  Country: US (occurrence: US)
  Receive Date: 20121002
  Receipt Date: 20121002
  Transmission Date: 20130627
  Serious: No
  Sender: FDA-Public Use
  Company Number: US-COVIDIEN/TYCO HEALTHCARE/MALLINCKRODT-T201102361

PATIENT
  Age: 67 Year
  Sex: Female

DRUGS (15)
  1. EXALGO EXTENDED RELEASE [Suspect]
     Dosage: 12 mg, qd
     Dates: start: 20101123, end: 20110208
  2. EXALGO EXTENDED RELEASE [Suspect]
     Dosage: 8 mg qd
     Dates: start: 20101116, end: 20101123
  3. FENTANYL [Concomitant]
     Indication: NEURALGIA
     Dosage: 25 mcg, every 72 hours
     Dates: start: 20101019, end: 20101116
  4. NORCO [Concomitant]
     Indication: BREAKTHROUGH PAIN
     Dosage: 10/325 1 tab bid
     Dates: start: 2009
  5. METFORMIN [Concomitant]
     Indication: DIABETES MELLITUS
     Dosage: 1000 mg, bid
     Dates: start: 2005
  6. METOPROLOL [Concomitant]
     Indication: HYPERTENSION
     Dosage: 100 mg, bid
     Dates: start: 2000
  7. GLIPIZIDE [Concomitant]
     Indication: DIABETES MELLITUS
     Dosage: 10 mg, bid
     Dates: start: 2005
  8. INDOMETHACIN                       /00003801/ [Concomitant]
     Indication: OSTEOARTHRITIS
     Dosage: 75 mg, qd
     Dates: start: 2008
  9. RANITIDINE [Concomitant]
     Indication: GASTROOESOPHAGEAL REFLUX DISEASE
     Dosage: 300 mg, qd
     Dates: start: 2007
  10. TRAZODONE [Concomitant]
     Indication: DEPRESSION
     Dosage: 150 mg, qd
     Dates: start: 2002
  11. PROZAC                             /00724401/ [Concomitant]
     Indication: DEPRESSION
     Dosage: 40 mg, qd
     Dates: start: 1990
  12. AMITRIPTYLINE [Concomitant]
     Indication: DEPRESSION
     Dosage: 75 mg, qd
     Dates: start: 2000
  13. NORVASC                            /00972401/ [Concomitant]
     Indication: HYPERTENSION
     Dosage: 5 mg, qd
     Dates: start: 2000
  14. LISINOPRIL [Concomitant]
     Indication: HYPERTENSION
     Dosage: 40 mg, qd
     Dates: start: 2000
  15. HYDROCHLOROTHIAZIDE [Concomitant]
     Indication: HYPERTENSION
     Dosage: 12.5 mg, qd
     Dates: start: 2000

REACTIONS (1)
  - Influenza [Recovered/Resolved]
